FAERS Safety Report 15717286 (Version 5)
Quarter: 2020Q1

REPORT INFORMATION
  Report Type: Spontaneous
  Country: US (occurrence: US)
  Receive Date: 20181213
  Receipt Date: 20200309
  Transmission Date: 20200409
  Serious: No
  Sender: FDA-Public Use
  Company Number: US-PFIZER INC-2018513200

PATIENT
  Age: 13 Year
  Sex: Male
  Weight: 59.8 kg

DRUGS (2)
  1. GENOTROPIN [Suspect]
     Active Substance: SOMATROPIN
     Indication: GROWTH HORMONE DEFICIENCY
     Dosage: 3 MG, DAILY
  2. GENOTROPIN [Suspect]
     Active Substance: SOMATROPIN
     Dosage: 3.2 MG, 1X/DAY (NIGHTLY)
     Route: 058
     Dates: start: 201601

REACTIONS (7)
  - Device use issue [Unknown]
  - Device issue [Unknown]
  - Low density lipoprotein increased [Unknown]
  - Migraine [Unknown]
  - Poor quality device used [Unknown]
  - Glycosylated haemoglobin increased [Unknown]
  - Blood glucose increased [Unknown]

NARRATIVE: CASE EVENT DATE: 20181004
